FAERS Safety Report 21151271 (Version 1)
Quarter: 2022Q3

REPORT INFORMATION
  Report Type: Spontaneous
  Country: US (occurrence: US)
  Receive Date: 20220730
  Receipt Date: 20220730
  Transmission Date: 20221027
  Serious: No
  Sender: FDA-Public Use
  Company Number: US-SA-SAC20220719002101

PATIENT
  Age: 81 Year
  Sex: Male
  Weight: 81 kg

DRUGS (10)
  1. DUPIXENT [Suspect]
     Active Substance: DUPILUMAB
     Indication: Dermatitis atopic
     Dosage: 600 MG, 1X
     Route: 058
     Dates: start: 20220701, end: 20220701
  2. ASPIRIN [Concomitant]
     Active Substance: ASPIRIN
     Route: 048
  3. PATADAY [Concomitant]
     Active Substance: OLOPATADINE HYDROCHLORIDE
  4. ALPRAZOLAM [Concomitant]
     Active Substance: ALPRAZOLAM
  5. HYDROCORTISONE [Concomitant]
     Active Substance: HYDROCORTISONE
  6. TRIAMCINOLONE ACETONIDE [Concomitant]
     Active Substance: TRIAMCINOLONE ACETONIDE
  7. ALLEGRA ALLERGY [Concomitant]
     Active Substance: FEXOFENADINE HYDROCHLORIDE
  8. MODERNA COVID-19 VACCINE [Concomitant]
     Active Substance: ELASOMERAN
  9. ERYTHROMYCIN [Concomitant]
     Active Substance: ERYTHROMYCIN
  10. PENICILLIN [Concomitant]
     Active Substance: PENICILLIN

REACTIONS (5)
  - Dermatitis atopic [Unknown]
  - Skin exfoliation [Unknown]
  - Erythema of eyelid [Unknown]
  - Eyelid skin dryness [Unknown]
  - Eye discharge [Unknown]

NARRATIVE: CASE EVENT DATE: 20220101
